FAERS Safety Report 7425221-5 (Version None)
Quarter: 2011Q2

REPORT INFORMATION
  Report Type: 
  Country: None (occurrence: None)
  Receive Date: 20110420
  Receipt Date: 20110411
  Transmission Date: 20111010
  Serious: Yes (Other)
  Sender: FDA-Public Use
  Company Number: US-RANBAXY-2011RR-43610

PATIENT
  Sex: Male

DRUGS (6)
  1. LEVAQUIN [Suspect]
     Indication: BRONCHITIS
     Route: 048
  2. LEVAQUIN [Suspect]
     Indication: INFECTION
  3. LEVAQUIN [Suspect]
     Indication: CELLULITIS
     Route: 042
  4. CIPROFLOXACIN [Suspect]
     Indication: ANTIBIOTIC THERAPY
     Route: 065
  5. AVELOX [Suspect]
     Indication: ANTIBIOTIC THERAPY
     Dosage: 400 MG, QD
     Route: 065
  6. LEVAQUIN [Suspect]

REACTIONS (2)
  - PLANTAR FASCIITIS [None]
  - TENDON RUPTURE [None]
